FAERS Safety Report 12763867 (Version 1)
Quarter: 2016Q3

REPORT INFORMATION
  Report Type: Spontaneous
  Country: US (occurrence: US)
  Receive Date: 20160915
  Receipt Date: 20160915
  Transmission Date: 20161109
  Serious: No
  Sender: FDA-Public Use
  Company Number: None

PATIENT
  Age: 23 Year
  Sex: Female

DRUGS (1)
  1. GLATOPA [Suspect]
     Active Substance: GLATIRAMER ACETATE
     Indication: MULTIPLE SCLEROSIS
     Dosage: 20MG/ML INJECT 1 PFS SQ DAILY SQ
     Route: 058
     Dates: start: 20150824, end: 20160701

REACTIONS (4)
  - Pruritus [None]
  - Injection site eczema [None]
  - Injection site reaction [None]
  - Condition aggravated [None]

NARRATIVE: CASE EVENT DATE: 20160701
